FAERS Safety Report 7466096-8 (Version None)
Quarter: 2011Q2

REPORT INFORMATION
  Report Type: 
  Country: None (occurrence: None)
  Receive Date: 20110509
  Receipt Date: 20100701
  Transmission Date: 20111010
  Serious: No
  Sender: FDA-Public Use
  Company Number: US-ALEXION-A201000775

PATIENT
  Sex: Female

DRUGS (8)
  1. POTASSIUM [Concomitant]
     Dosage: UNK
  2. CORGARD [Concomitant]
     Dosage: UNK
  3. FOLIC ACID [Concomitant]
     Dosage: UNK
  4. INDERAL                            /00030001/ [Concomitant]
     Dosage: UNK
  5. SOLIRIS [Suspect]
     Indication: PAROXYSMAL NOCTURNAL HAEMOGLOBINURIA
     Dosage: 600 MG, QW
     Route: 042
     Dates: start: 20100627, end: 20100720
  6. PREDNISONE [Concomitant]
     Dosage: UNK
  7. PRILOSEC [Concomitant]
     Dosage: UNK
  8. CIPRO [Concomitant]
     Dosage: UNK
     Dates: start: 20100706

REACTIONS (7)
  - MUSCULOSKELETAL STIFFNESS [None]
  - COUGH [None]
  - RHINORRHOEA [None]
  - ARTHRALGIA [None]
  - LACRIMAL DISORDER [None]
  - OROPHARYNGEAL PAIN [None]
  - MYALGIA [None]
